FAERS Safety Report 9868746 (Version 1)
Quarter: 2014Q1

REPORT INFORMATION
  Report Type: Spontaneous
  Country: US (occurrence: US)
  Receive Date: 20140204
  Receipt Date: 20140204
  Transmission Date: 20141002
  Serious: Yes (Other)
  Sender: FDA-Public Use
  Company Number: US-MPIJNJ-2014MPI000347

PATIENT
  Age: 56 Year
  Sex: Male

DRUGS (6)
  1. VELCADE [Suspect]
     Indication: PLASMA CELL MYELOMA
     Dosage: UNK
     Dates: start: 20130903
  2. REVLIMID [Suspect]
     Indication: PLASMA CELL MYELOMA
     Dosage: 25 MG, QD, 21 IN 28 DAYS
     Route: 048
     Dates: start: 200907, end: 201007
  3. REVLIMID [Suspect]
     Dosage: 25 MG, QD, 14 IN 21 DAYS
     Route: 048
     Dates: start: 20130903
  4. DECADRON                           /00016001/ [Concomitant]
     Indication: PLASMA CELL MYELOMA
     Dosage: 40 MG, 1 IN WEEKLY
     Dates: start: 200907, end: 201007
  5. DECADRON                           /00016001/ [Concomitant]
     Dosage: UNK
     Dates: start: 20130903
  6. ASPIRIN [Concomitant]
     Indication: ANTICOAGULANT THERAPY
     Dosage: 81 MG, QD
     Dates: start: 2009

REACTIONS (10)
  - Deep vein thrombosis [Unknown]
  - Syncope [Recovered/Resolved]
  - Dry mouth [Recovered/Resolved]
  - Dizziness [Recovered/Resolved]
  - Back pain [Not Recovered/Not Resolved]
  - Pain [Recovered/Resolved]
  - Dehydration [Unknown]
  - Malaise [Unknown]
  - Pain in extremity [Unknown]
  - Local swelling [Unknown]
